FAERS Safety Report 10034383 (Version 2)
Quarter: 2014Q2

REPORT INFORMATION
  Report Type: Spontaneous
  Country: US (occurrence: US)
  Receive Date: 20140325
  Receipt Date: 20140618
  Transmission Date: 20141212
  Serious: Yes (Life-Threatening, Hospitalization, Disabling, Other)
  Sender: FDA-Public Use
  Company Number: US-009507513-1403USA010868

PATIENT
  Sex: Female
  Weight: 57.14 kg

DRUGS (5)
  1. JANUVIA [Suspect]
     Indication: DIABETES MELLITUS
     Dosage: 100 MG, QD
     Route: 048
     Dates: start: 2008
  2. METFORMIN [Concomitant]
  3. INSULIN [Concomitant]
  4. PRINIVIL [Concomitant]
     Route: 048
  5. LIPITOR [Concomitant]

REACTIONS (3)
  - Aortic valve disease [Recovered/Resolved]
  - Aortic stenosis [Recovered/Resolved]
  - Surgery [Recovered/Resolved]
